FAERS Safety Report 10056664 (Version 1)
Quarter: 2014Q2

REPORT INFORMATION
  Report Type: Spontaneous
  Country: IN (occurrence: IN)
  Receive Date: 20140403
  Receipt Date: 20140403
  Transmission Date: 20141212
  Serious: Yes (Hospitalization, Other)
  Sender: FDA-Public Use
  Company Number: IN-ACTAVIS-2014-05977

PATIENT
  Age: 40 Year
  Sex: Female

DRUGS (1)
  1. CARBAMAZEPINE (UNKNOWN) [Suspect]
     Indication: EPILEPSY
     Dosage: UNK
     Route: 065

REACTIONS (2)
  - Hidradenitis [Recovered/Resolved with Sequelae]
  - Vomiting [Unknown]
